FAERS Safety Report 25903078 (Version 3)
Quarter: 2025Q4

REPORT INFORMATION
  Report Type: Spontaneous
  Country: US (occurrence: US)
  Receive Date: 20251009
  Receipt Date: 20251105
  Transmission Date: 20260118
  Serious: No
  Sender: PFIZER
  Company Number: US-PFIZER INC-202500051583

PATIENT
  Age: 80 Year
  Sex: Female

DRUGS (1)
  1. XALKORI [Suspect]
     Active Substance: CRIZOTINIB
     Indication: Lung neoplasm malignant
     Dosage: TAKE 1 CAPSULE (250 MG TOTAL) BY MOUTH TWO (2) TIMES A DAY
     Route: 048

REACTIONS (3)
  - Blood pressure decreased [Unknown]
  - Nasopharyngitis [Unknown]
  - Peripheral swelling [Unknown]
